FAERS Safety Report 16812666 (Version 1)
Quarter: 2019Q3

REPORT INFORMATION
  Report Type: Report from Study
  Country: JP (occurrence: JP)
  Receive Date: 20190916
  Receipt Date: 20190916
  Transmission Date: 20191005
  Serious: Yes (Hospitalization, Other)
  Sender: FDA-Public Use
  Company Number: JP-GILEAD-2019-0428404

PATIENT
  Age: 47 Year
  Sex: Male

DRUGS (11)
  1. TAKECAB [Concomitant]
     Active Substance: VONOPRAZAN FUMURATE
     Route: 048
  2. MYSLEE [Concomitant]
     Active Substance: ZOLPIDEM TARTRATE
     Route: 048
     Dates: start: 20180401
  3. JZOLOFT [Concomitant]
     Active Substance: SERTRALINE HYDROCHLORIDE
     Route: 048
     Dates: start: 20180401
  4. QUETIAPINE. [Concomitant]
     Active Substance: QUETIAPINE
     Route: 048
  5. VITAMEDIN [BENFOTIAMINE;CYANOCOBALAMIN;PYRIDOXINE HYDROCHLORIDE] [Concomitant]
     Route: 065
  6. EMTRICITABINE/TENOFOVIR ALAFENAMIDE [Suspect]
     Active Substance: EMTRICITABINE\TENOFOVIR
     Indication: HIV INFECTION
     Dosage: 1 DOSAGE FORM, QD
     Route: 048
     Dates: start: 20170227
  7. TIVICAY [Suspect]
     Active Substance: DOLUTEGRAVIR SODIUM
     Indication: HIV INFECTION
     Dosage: 50 MG, QD
     Route: 048
     Dates: start: 20170227
  8. BELSOMRA [Concomitant]
     Active Substance: SUVOREXANT
     Route: 048
     Dates: start: 20180605
  9. BESTON [Concomitant]
     Route: 048
  10. SEDIEL [Concomitant]
     Active Substance: TANDOSPIRONE
     Route: 048
     Dates: start: 20180401
  11. ZOLPIDEM TARTRATE. [Concomitant]
     Active Substance: ZOLPIDEM TARTRATE
     Route: 048

REACTIONS (1)
  - Alcoholism [Recovering/Resolving]

NARRATIVE: CASE EVENT DATE: 20181005
